FAERS Safety Report 14497053 (Version 1)
Quarter: 2018Q1

REPORT INFORMATION
  Report Type: Other
  Country: IT (occurrence: IT)
  Receive Date: 20180207
  Receipt Date: 20180207
  Transmission Date: 20180509
  Serious: Yes (Hospitalization)
  Sender: FDA-Public Use
  Company Number: IT-GLENMARK PHARMACEUTICALS-2017GMK031078

PATIENT

DRUGS (1)
  1. NEBIVOLOL. [Suspect]
     Active Substance: NEBIVOLOL
     Indication: HYPERTENSION
     Dosage: UNK
     Route: 048

REACTIONS (5)
  - Arteriospasm coronary [Recovered/Resolved]
  - Angina unstable [Recovered/Resolved]
  - Prinzmetal angina [Recovered/Resolved]
  - Arteriosclerosis coronary artery [Recovered/Resolved]
  - Electrocardiogram ST segment elevation [Recovered/Resolved]
